FAERS Safety Report 24111600 (Version 2)
Quarter: 2024Q3

REPORT INFORMATION
  Report Type: Spontaneous
  Country: US (occurrence: US)
  Receive Date: 20240718
  Receipt Date: 20240802
  Transmission Date: 20241017
  Serious: No
  Sender: JOHNSON AND JOHNSON
  Company Number: US-JNJFOC-20240742589

PATIENT
  Sex: Male

DRUGS (1)
  1. RISPERDAL [Suspect]
     Active Substance: RISPERIDONE
     Indication: Attention deficit hyperactivity disorder
     Dosage: START DATE PROBABLY ABOUT IN 2013
     Route: 048

REACTIONS (6)
  - Breast enlargement [Unknown]
  - Illness [Unknown]
  - Eating disorder [Unknown]
  - Restlessness [Unknown]
  - Insomnia [Unknown]
  - Off label use [Unknown]
